FAERS Safety Report 8427188-X (Version None)
Quarter: 2012Q2

REPORT INFORMATION
  Report Type: 
  Country: None (occurrence: None)
  Receive Date: 20120611
  Receipt Date: 20120608
  Transmission Date: 20120825
  Serious: Yes (Other)
  Sender: FDA-Public Use
  Company Number: US-PFIZER INC-2012138722

PATIENT
  Sex: Female
  Weight: 75.737 kg

DRUGS (8)
  1. PERCOCET [Concomitant]
     Indication: BACK PAIN
     Dosage: 5/325, MG, DAILY
     Route: 048
  2. CHANTIX [Suspect]
     Indication: SMOKING CESSATION THERAPY
     Dosage: 0.5 MG, DAILY
     Route: 048
     Dates: start: 20120502, end: 20120501
  3. CHANTIX [Suspect]
     Dosage: 0.5 MG, UNK
     Route: 048
     Dates: start: 20120501, end: 20120101
  4. TRAZODONE [Concomitant]
     Indication: SLEEP DISORDER
     Dosage: 50 MG, DAILY
  5. GABAPENTIN [Concomitant]
     Indication: NEUROPATHY PERIPHERAL
     Dosage: 600 MG, UNK
  6. AMLODIPINE BESILATE [Concomitant]
     Indication: HYPERTENSION
     Dosage: 5 MG, UNK
  7. CHANTIX [Suspect]
     Dosage: UNK
     Dates: start: 20120101, end: 20120607
  8. MORPHINE [Concomitant]
     Indication: BACK PAIN
     Dosage: 30 MG, DAILY

REACTIONS (8)
  - RASH [None]
  - INSOMNIA [None]
  - VOMITING [None]
  - RESPIRATION ABNORMAL [None]
  - CONSTIPATION [None]
  - NAUSEA [None]
  - DYSPHAGIA [None]
  - URINARY INCONTINENCE [None]
